FAERS Safety Report 25014006 (Version 2)
Quarter: 2025Q2

REPORT INFORMATION
  Report Type: Spontaneous
  Country: IN (occurrence: IN)
  Receive Date: 20250226
  Receipt Date: 20250625
  Transmission Date: 20250717
  Serious: Yes (Other)
  Sender: PFIZER
  Company Number: IN-PFIZER INC-PV202500006478

PATIENT
  Age: 67 Year
  Sex: Male

DRUGS (4)
  1. LORLATINIB [Suspect]
     Active Substance: LORLATINIB
     Indication: Non-small cell lung cancer metastatic
     Dosage: 100 MG, OD
     Route: 048
     Dates: start: 20241228
  2. PEMETREXED [Concomitant]
     Active Substance: PEMETREXED
  3. CARBOPLATIN [Concomitant]
     Active Substance: CARBOPLATIN
  4. ALBENDAZOLE [Concomitant]
     Active Substance: ALBENDAZOLE

REACTIONS (10)
  - Weight decreased [Unknown]
  - Heart rate increased [Recovered/Resolved]
  - Haemoptysis [Unknown]
  - Oedema [Recovering/Resolving]
  - Blood triglycerides increased [Unknown]
  - Blood glucose increased [Unknown]
  - Blood cholesterol increased [Unknown]
  - Fatigue [Unknown]
  - Headache [Unknown]
  - Lipids abnormal [Unknown]

NARRATIVE: CASE EVENT DATE: 20250113
